FAERS Safety Report 11218166 (Version 2)
Quarter: 2015Q3

REPORT INFORMATION
  Report Type: Other
  Country: US (occurrence: US)
  Receive Date: 20150625
  Receipt Date: 20150805
  Transmission Date: 20151125
  Serious: Yes (Other)
  Sender: FDA-Public Use
  Company Number: US-SHIRE-US201505300

PATIENT
  Age: 31 Year
  Sex: Female
  Weight: 74.83 kg

DRUGS (4)
  1. CINRYZE [Suspect]
     Active Substance: HUMAN C1-ESTERASE INHIBITOR
     Indication: HEREDITARY ANGIOEDEMA
     Dosage: 1000 UNITS, EVERY FOUR DAYS
     Route: 042
     Dates: start: 201505
  2. CINRYZE [Suspect]
     Active Substance: HUMAN C1-ESTERASE INHIBITOR
     Indication: PROPHYLAXIS
     Dosage: 1000 UNITS EVERY FOUR DAYS
     Route: 042
     Dates: start: 20140711
  3. PROVENTIL                          /00139501/ [Concomitant]
     Indication: ASTHMA
     Dosage: 2 PUFFS AS REQ^D Q 4-6 HOURS
     Route: 055
     Dates: start: 201411
  4. FIRAZYR [Suspect]
     Active Substance: ICATIBANT ACETATE
     Indication: HEREDITARY ANGIOEDEMA
     Dosage: 30 MG, AS REQ^D
     Route: 058
     Dates: start: 201502

REACTIONS (8)
  - Blood pressure fluctuation [Recovered/Resolved]
  - Blood pressure decreased [Unknown]
  - Miosis [Unknown]
  - Infusion related reaction [Unknown]
  - Generalised tonic-clonic seizure [Recovered/Resolved]
  - Seizure [Recovered/Resolved]
  - Feeling abnormal [Unknown]
  - Dizziness [Recovered/Resolved]

NARRATIVE: CASE EVENT DATE: 2014
